FAERS Safety Report 9466386 (Version 1)
Quarter: 2013Q3

REPORT INFORMATION
  Report Type: Spontaneous
  Country: US (occurrence: None)
  Receive Date: 20130816
  Receipt Date: 20130816
  Transmission Date: 20140515
  Serious: No
  Sender: FDA-Public Use
  Company Number: None

PATIENT
  Age: 75 Year
  Sex: 0
  Weight: 80.74 kg

DRUGS (3)
  1. METHYLPREDNISOLONE [Suspect]
     Dosage: 21 TABLETS 6 DAYS
     Dates: start: 20130528
  2. METHYLPREDNISOLONE [Suspect]
     Dosage: 21 TABLETS 6 DAYS
     Dates: start: 20130611
  3. ZOSTAVAX [Suspect]
     Dates: start: 20120327

REACTIONS (5)
  - Rash [None]
  - Discomfort [None]
  - Chest discomfort [None]
  - Herpes zoster [None]
  - Pain [None]
